FAERS Safety Report 24760324 (Version 2)
Quarter: 2025Q3

REPORT INFORMATION
  Report Type: Report from Study
  Country: GB (occurrence: GB)
  Receive Date: 20241220
  Receipt Date: 20250822
  Transmission Date: 20251021
  Serious: Yes (Death)
  Sender: HELSINN HEALTHCARE
  Company Number: GB-HBP-2024GB031507

PATIENT
  Sex: Male

DRUGS (1)
  1. MECHLORETHAMINE HYDROCHLORIDE [Suspect]
     Active Substance: MECHLORETHAMINE HYDROCHLORIDE
     Indication: Cutaneous T-cell lymphoma
     Route: 061
     Dates: start: 202211, end: 202412

REACTIONS (1)
  - Death [Fatal]
